FAERS Safety Report 16747741 (Version 2)
Quarter: 2019Q3

REPORT INFORMATION
  Report Type: Spontaneous
  Country: US (occurrence: US)
  Receive Date: 20190827
  Receipt Date: 20190830
  Transmission Date: 20191005
  Serious: No
  Sender: FDA-Public Use
  Company Number: US-PFIZER INC-2019365273

PATIENT
  Sex: Female

DRUGS (1)
  1. RELPAX [Suspect]
     Active Substance: ELETRIPTAN HYDROBROMIDE
     Dosage: UNK

REACTIONS (6)
  - Asthenia [Unknown]
  - Muscle spasms [Unknown]
  - Migraine [Unknown]
  - Recalled product administered [Unknown]
  - Gastric disorder [Unknown]
  - Fatigue [Unknown]
